FAERS Safety Report 4409864-9 (Version None)
Quarter: 2004Q3

REPORT INFORMATION
  Report Type: 
  Country: None (occurrence: None)
  Receive Date: 20040728
  Receipt Date: 20040715
  Transmission Date: 20050211
  Serious: Yes (Life-Threatening, Hospitalization, Disabling)
  Sender: FDA-Public Use
  Company Number: GB-BRISTOL-MYERS SQUIBB COMPANY-12652699

PATIENT
  Age: 16 Year
  Sex: Female
  Weight: 57 kg

DRUGS (9)
  1. IFOSFAMIDE [Suspect]
     Indication: BONE SARCOMA
     Route: 042
     Dates: start: 20040524, end: 20040524
  2. MESNA [Suspect]
     Indication: PROPHYLAXIS
     Dosage: THERAPY DATES: 24 TO 27-MAY-2004
     Route: 042
     Dates: start: 20040524, end: 20040524
  3. ETOPOSIDE [Suspect]
     Indication: BONE SARCOMA
     Route: 042
     Dates: start: 20040524, end: 20040524
  4. METHOTREXATE [Suspect]
     Indication: BONE SARCOMA
     Dosage: THERAPY DATES: 09 TO 10-JUN-2004
     Route: 042
     Dates: start: 20040610, end: 20040610
  5. NORETHISTERONE [Suspect]
     Dosage: THERAPY DATES: 06 TO 16-JUN-2004
     Route: 048
     Dates: start: 20040616, end: 20040616
  6. GRANISETRON [Concomitant]
     Route: 042
     Dates: start: 20040524, end: 20040527
  7. DEXAMETHASONE [Concomitant]
     Route: 042
     Dates: start: 20040524, end: 20040527
  8. ACYCLOVIR [Concomitant]
     Indication: HERPES VIRUS INFECTION
     Route: 042
     Dates: start: 20040611, end: 20040623
  9. LEUCOVORIN [Concomitant]
     Route: 042
     Dates: start: 20040610, end: 20040613

REACTIONS (1)
  - TRANSIENT ISCHAEMIC ATTACK [None]
